FAERS Safety Report 5654127-7 (Version None)
Quarter: 2008Q1

REPORT INFORMATION
  Report Type: 
  Country: None (occurrence: None)
  Receive Date: 20080306
  Receipt Date: 20080303
  Transmission Date: 20080703
  Serious: Yes (Other)
  Sender: FDA-Public Use
  Company Number: JP-BOEHRINGER INGELHEIM GMBH, GERMANY-2008-BP-03121RO

PATIENT
  Age: 65 Year
  Sex: Male

DRUGS (10)
  1. METHOTREXATE [Suspect]
     Indication: RHEUMATOID ARTHRITIS
  2. METHOTREXATE [Suspect]
  3. BUCILLAMINE [Suspect]
     Indication: RHEUMATOID ARTHRITIS
  4. PREDNISOLONE [Suspect]
     Indication: RHEUMATOID ARTHRITIS
  5. PREDNISOLONE [Suspect]
  6. SULFASALAZINE [Suspect]
     Indication: RHEUMATOID ARTHRITIS
  7. TACROLIMUS [Concomitant]
     Indication: RHEUMATOID ARTHRITIS
  8. MOBIC [Concomitant]
     Indication: RHEUMATOID ARTHRITIS
  9. REBAMIPIDE [Concomitant]
  10. LANSOPRAZOLE [Concomitant]

REACTIONS (4)
  - DERMATITIS ALLERGIC [None]
  - DRUG INEFFECTIVE [None]
  - GYNAECOMASTIA [None]
  - RHEUMATOID ARTHRITIS [None]
